FAERS Safety Report 16136287 (Version 1)
Quarter: 2019Q1

REPORT INFORMATION
  Report Type: Spontaneous
  Country: US (occurrence: US)
  Receive Date: 20190329
  Receipt Date: 20190329
  Transmission Date: 20190418
  Serious: No
  Sender: FDA-Public Use
  Company Number: US-B.I. PHARMACEUTICALS,INC./RIDGEFIELD-2019-BI-013634

PATIENT
  Sex: Male

DRUGS (1)
  1. SPIRIVA RESPIMAT [Suspect]
     Active Substance: TIOTROPIUM BROMIDE
     Indication: PRODUCT USED FOR UNKNOWN INDICATION
     Dosage: UNKNOWN;FORM OF ADMIN: INHALATION SPRAY;ADMINISTRATION CORRECT?NR; ACTION(S) TAKEN WITH PRODUCT:NR
     Route: 065
     Dates: start: 201903

REACTIONS (3)
  - Haemoptysis [Unknown]
  - Drug hypersensitivity [Unknown]
  - Cough [Unknown]
